FAERS Safety Report 9010190 (Version 1)
Quarter: 2013Q1

REPORT INFORMATION
  Report Type: Spontaneous
  Country: US (occurrence: US)
  Receive Date: 20130110
  Receipt Date: 20130110
  Transmission Date: 20140127
  Serious: Yes (Other)
  Sender: FDA-Public Use
  Company Number: US-ROXANE LABORATORIES, INC.-2013-RO-00006RO

PATIENT
  Age: 50 Year
  Sex: Female

DRUGS (6)
  1. AZATHIOPRINE [Suspect]
     Indication: CROHN^S DISEASE
  2. AZATHIOPRINE [Suspect]
     Dosage: 25 MG
  3. LANZOPRAZOLE [Concomitant]
  4. HYDROCHLOROTHIAZIDE [Concomitant]
  5. METOPROLOL [Concomitant]
  6. MESALAMINE [Concomitant]

REACTIONS (1)
  - Allergic hepatitis [Recovered/Resolved]
